FAERS Safety Report 6901079-5 (Version None)
Quarter: 2010Q3

REPORT INFORMATION
  Report Type: 
  Country: None (occurrence: None)
  Receive Date: 20100708
  Receipt Date: 20090513
  Transmission Date: 20110219
  Serious: Yes (Other)
  Sender: FDA-Public Use
  Company Number: 2009216518

PATIENT
  Age: 52 Year
  Sex: Male
  Weight: 132 kg

DRUGS (11)
  1. CHANTIX [Suspect]
     Indication: SMOKING CESSATION THERAPY
  2. ALPRAZOLAM [Concomitant]
  3. VYTORIN [Concomitant]
  4. WARFARIN SODIUM [Concomitant]
  5. TOPROL-XL [Concomitant]
  6. BENICAR [Concomitant]
  7. RANEXA [Concomitant]
  8. BUPROPION HCL [Concomitant]
  9. ACETYSALICYLIC ACID (ACETYSALICYLIC ACID) [Concomitant]
  10. NITROGLYCERIN [Concomitant]
  11. VALTREX [Concomitant]

REACTIONS (1)
  - DIABETES MELLITUS [None]
